FAERS Safety Report 23324574 (Version 2)
Quarter: 2023Q4

REPORT INFORMATION
  Report Type: Spontaneous
  Country: JP (occurrence: JP)
  Receive Date: 20231221
  Receipt Date: 20231226
  Transmission Date: 20240109
  Serious: Yes (Death, Other)
  Sender: FDA-Public Use
  Company Number: JP-GSKJP-JP2023JPN176877AA

PATIENT

DRUGS (1)
  1. FLOLAN [Suspect]
     Active Substance: EPOPROSTENOL SODIUM
     Dosage: UNK

REACTIONS (5)
  - Pulmonary capillary haemangiomatosis [Fatal]
  - Pulmonary hypertension [Unknown]
  - Ventricular septal defect [Unknown]
  - Condition aggravated [Unknown]
  - Product use issue [Unknown]
